FAERS Safety Report 9355161 (Version 2)
Quarter: 2013Q3

REPORT INFORMATION
  Report Type: Spontaneous
  Country: JP (occurrence: JP)
  Receive Date: 20130619
  Receipt Date: 20130701
  Transmission Date: 20140515
  Serious: Yes (Other)
  Sender: FDA-Public Use
  Company Number: PHHY2013JP061731

PATIENT
  Age: 82 Year
  Sex: Male

DRUGS (3)
  1. TASIGNA [Suspect]
     Indication: CHRONIC MYELOID LEUKAEMIA
     Dosage: 400 MG, DAILY
     Route: 048
     Dates: start: 20130205, end: 20130219
  2. TASIGNA [Suspect]
     Dosage: 300 MG, DAILY
     Route: 048
     Dates: start: 20130402, end: 20130507
  3. TASIGNA [Suspect]
     Dosage: 150 MG, DAILY
     Route: 048
     Dates: start: 20130611

REACTIONS (1)
  - Electrocardiogram QT prolonged [Recovered/Resolved]
